FAERS Safety Report 18859197 (Version 1)
Quarter: 2021Q1

REPORT INFORMATION
  Report Type: Spontaneous
  Country: US (occurrence: US)
  Receive Date: 20210205
  Receipt Date: 20210205
  Transmission Date: 20210420
  Serious: Yes (Death, Other)
  Sender: FDA-Public Use
  Company Number: None

PATIENT
  Age: 19 Year
  Sex: Female
  Weight: 149.23 kg

DRUGS (2)
  1. LEVOTHYROXINE 50MCG [Suspect]
     Active Substance: LEVOTHYROXINE
  2. LEVOTHYROXINE 250MCG [Suspect]
     Active Substance: LEVOTHYROXINE
     Indication: HYPOTHYROIDISM
     Route: 048
     Dates: start: 20190707, end: 20210203

REACTIONS (3)
  - Fatigue [None]
  - Therapeutic product effect incomplete [None]
  - Temperature intolerance [None]

NARRATIVE: CASE EVENT DATE: 20190707
